FAERS Safety Report 7085788-6 (Version None)
Quarter: 2010Q4

REPORT INFORMATION
  Report Type: 
  Country: None (occurrence: None)
  Receive Date: 20101105
  Receipt Date: 20091110
  Transmission Date: 20110411
  Serious: Yes (Death, Hospitalization, Other)
  Sender: FDA-Public Use
  Company Number: AU-ROCHE-733499

PATIENT
  Sex: Female

DRUGS (1)
  1. AVASTIN [Suspect]
     Route: 042

REACTIONS (4)
  - DEATH [None]
  - ILL-DEFINED DISORDER [None]
  - NEUTROPENIA [None]
  - SEPSIS [None]
